FAERS Safety Report 7121121-9 (Version None)
Quarter: 2010Q4

REPORT INFORMATION
  Report Type: 
  Country: None (occurrence: None)
  Receive Date: 20101124
  Receipt Date: 20100708
  Transmission Date: 20110411
  Serious: Yes (Other)
  Sender: FDA-Public Use
  Company Number: US-PFIZER INC-2010085827

PATIENT
  Sex: Male
  Weight: 88 kg

DRUGS (11)
  1. TIKOSYN [Suspect]
     Indication: TACHYCARDIA
     Dosage: 250 UG, 2X/DAY
     Route: 048
     Dates: start: 20090101
  2. KEPPRA [Concomitant]
     Indication: CONVULSION
     Dosage: 1500 MG, 2X/DAY
     Route: 048
  3. CARBAMAZEPINE [Concomitant]
     Indication: CONVULSION
     Dosage: 200 MG, 2X/DAY
  4. TERAZOSIN [Concomitant]
     Indication: DYSURIA
     Dosage: 10 MG, 2X/DAY
  5. LOVASTATIN [Concomitant]
     Indication: CARDIAC DISORDER
     Dosage: 40 MG, 1X/DAY
  6. COUMADIN [Concomitant]
     Indication: CARDIAC DISORDER
     Dosage: 12 MG, 3X/DAY
     Route: 048
  7. TOPROL-XL [Concomitant]
     Indication: CARDIAC DISORDER
     Dosage: 0.5 MG, 1X/DAY
     Route: 048
  8. DIOVANE [Concomitant]
     Indication: CARDIAC DISORDER
     Dosage: 80 MG, 1X/DAY
     Route: 048
  9. LORAZEPAM [Concomitant]
     Indication: SLEEP DISORDER
     Dosage: 0.5 MG, 2X/WEEK
  10. TIMOLOL [Concomitant]
     Indication: GLAUCOMA
     Dosage: UNK GTT, UNK
     Route: 047
  11. XALATAN [Concomitant]
     Indication: GLAUCOMA
     Dosage: UNK GTT, UNK
     Route: 047

REACTIONS (2)
  - DYSPNOEA [None]
  - TACHYCARDIA [None]
